FAERS Safety Report 12803741 (Version 2)
Quarter: 2016Q4

REPORT INFORMATION
  Report Type: Spontaneous
  Country: JP (occurrence: JP)
  Receive Date: 20161003
  Receipt Date: 20161229
  Transmission Date: 20170207
  Serious: Yes (Other)
  Sender: FDA-Public Use
  Company Number: JP-TEVA-696143ISR

PATIENT
  Age: 27 Year
  Sex: Male

DRUGS (5)
  1. METHOTREXATE. [Concomitant]
     Active Substance: METHOTREXATE
     Indication: GERM CELL CANCER METASTATIC
     Dosage: RECEIVED FOUR CYCLES
     Route: 065
  2. CISPLATIN. [Concomitant]
     Active Substance: CISPLATIN
     Indication: GERM CELL CANCER METASTATIC
     Dosage: RECEIVED FOUR CYCLES
     Route: 065
  3. VINCRISTINE [Concomitant]
     Active Substance: VINCRISTINE
     Indication: GERM CELL CANCER METASTATIC
     Dosage: RECEIVED FOUR CYCLES
     Route: 065
  4. PEPLOMYCIN [Concomitant]
     Active Substance: PEPLOMYCIN
     Indication: GERM CELL CANCER METASTATIC
     Dosage: RECEIVED FOUR CYCLES
     Route: 065
  5. ETOPOSIDE. [Suspect]
     Active Substance: ETOPOSIDE
     Indication: GERM CELL CANCER METASTATIC
     Dosage: RECEIVED FOUR CYCLES
     Route: 065

REACTIONS (1)
  - Acute myeloid leukaemia [Recovered/Resolved]
